FAERS Safety Report 4470713-4 (Version None)
Quarter: 2004Q4

REPORT INFORMATION
  Report Type: 
  Country: None (occurrence: None)
  Receive Date: 20041005
  Receipt Date: 20040923
  Transmission Date: 20050328
  Serious: No
  Sender: FDA-Public Use
  Company Number: 208449

PATIENT
  Age: 78 Year
  Sex: Female
  Weight: 51.7 kg

DRUGS (6)
  1. AVASTIN [Suspect]
     Indication: COLON CANCER METASTATIC
     Dosage: SEE IMAGE
     Route: 042
     Dates: start: 20040330, end: 20040511
  2. AVASTIN [Suspect]
     Indication: COLON CANCER METASTATIC
     Dosage: SEE IMAGE
     Route: 042
     Dates: start: 20040511
  3. FLUOROURACIL [Concomitant]
  4. LEUCOVORIN CALCIUM [Concomitant]
  5. IRINOTECAN (IRINOTECAN HYDROCHLORIDE) [Concomitant]
  6. EPOETIN (EPOETIN NOS) [Concomitant]

REACTIONS (15)
  - ASTHENIA [None]
  - ATELECTASIS [None]
  - BLOOD GLUCOSE INCREASED [None]
  - CARCINOEMBRYONIC ANTIGEN INCREASED [None]
  - DISCOMFORT [None]
  - DISEASE PROGRESSION [None]
  - FLUID INTAKE REDUCED [None]
  - INSOMNIA [None]
  - PAIN [None]
  - PULMONARY EMBOLISM [None]
  - PULMONARY INFARCTION [None]
  - PYREXIA [None]
  - THERAPEUTIC RESPONSE DECREASED [None]
  - WEIGHT DECREASED [None]
  - WHITE BLOOD CELL COUNT DECREASED [None]
